FAERS Safety Report 9669304 (Version 3)
Quarter: 2013Q4

REPORT INFORMATION
  Report Type: Spontaneous
  Country: AU (occurrence: AU)
  Receive Date: 20131105
  Receipt Date: 20131219
  Transmission Date: 20140711
  Serious: Yes (Death, Hospitalization)
  Sender: FDA-Public Use
  Company Number: AU-JNJFOC-20131018311

PATIENT
  Age: 8 Decade
  Sex: Male
  Weight: 50 kg

DRUGS (5)
  1. ZYTIGA [Suspect]
     Indication: PRODUCT USED FOR UNKNOWN INDICATION
     Route: 048
     Dates: start: 20130902, end: 20131014
  2. DIAMICRON [Concomitant]
     Route: 065
  3. JANUVIA [Concomitant]
     Route: 065
  4. LIPITOR [Concomitant]
     Route: 065
  5. AMLODIPINE [Concomitant]
     Route: 065

REACTIONS (2)
  - Pulmonary fibrosis [Fatal]
  - Pneumocystis jirovecii pneumonia [Unknown]
